FAERS Safety Report 5056277-5 (Version None)
Quarter: 2006Q2

REPORT INFORMATION
  Report Type: 
  Country: None (occurrence: None)
  Receive Date: 20060616
  Receipt Date: 20060111
  Transmission Date: 20061013
  Serious: Yes (Other)
  Sender: FDA-Public Use
  Company Number: PHEH2006US00807

PATIENT

DRUGS (1)
  1. EXELON [Suspect]

REACTIONS (1)
  - BRADYCARDIA [None]
